FAERS Safety Report 7289901-7 (Version None)
Quarter: 2011Q1

REPORT INFORMATION
  Report Type: 
  Country: None (occurrence: None)
  Receive Date: 20110126
  Receipt Date: 20101231
  Transmission Date: 20110831
  Serious: Yes (Death)
  Sender: FDA-Public Use
  Company Number: AUR-APL-2011-00184

PATIENT
  Age: 56 Year
  Sex: Female

DRUGS (11)
  1. VENLAFAXINE [Suspect]
     Dosage: ORAL
     Route: 048
  2. PROMETHAZINE HCL [Suspect]
     Dosage: ORAL
     Route: 048
  3. ETHANOL [Suspect]
     Dosage: ORAL
     Route: 048
  4. LISINOPRIL [Suspect]
     Dosage: ORAL
     Route: 048
  5. OXYCODONE [Suspect]
     Dosage: ORAL
     Route: 048
  6. METFORMIN [Suspect]
     Dosage: ORAL
     Route: 048
  7. TRAMADOL [Suspect]
     Dosage: ORAL
     Route: 048
  8. MELOXICAM [Suspect]
     Dosage: ORAL
     Route: 048
  9. SIMVASTATIN [Suspect]
     Dosage: ORAL
     Route: 048
  10. CLONAZEPAM [Suspect]
     Dosage: ORAL
     Route: 048
  11. OXYCONTIN [Suspect]
     Dosage: ORAL
     Route: 048

REACTIONS (1)
  - TOXICITY TO VARIOUS AGENTS [None]
